FAERS Safety Report 21147433 (Version 1)
Quarter: 2022Q3

REPORT INFORMATION
  Report Type: Spontaneous
  Country: US (occurrence: None)
  Receive Date: 20220728
  Receipt Date: 20220728
  Transmission Date: 20221026
  Serious: Yes (Life-Threatening, Hospitalization)
  Sender: FDA-Public Use
  Company Number: None

PATIENT
  Age: 72 Year
  Sex: Male

DRUGS (1)
  1. APIXABAN [Suspect]
     Active Substance: APIXABAN

REACTIONS (4)
  - Cerebrovascular accident [None]
  - Haemorrhage intracranial [None]
  - Atrial fibrillation [None]
  - Therapy interrupted [None]

NARRATIVE: CASE EVENT DATE: 20220213
